FAERS Safety Report 4273096-8 (Version None)
Quarter: 2004Q1

REPORT INFORMATION
  Report Type: 
  Country: None (occurrence: None)
  Receive Date: 20040116
  Receipt Date: 20040108
  Transmission Date: 20041129
  Serious: Yes (Hospitalization)
  Sender: FDA-Public Use
  Company Number: PHEH2004US00671

PATIENT
  Age: 89 Year
  Sex: Female

DRUGS (4)
  1. FAMVIR [Suspect]
     Dosage: 500 MG, TID
     Route: 048
  2. SINEMET [Concomitant]
     Indication: PARKINSON'S DISEASE
  3. TEQUIN [Concomitant]
  4. TOPROL-XL [Concomitant]

REACTIONS (2)
  - ABASIA [None]
  - ASTHENIA [None]
